FAERS Safety Report 12115247 (Version 1)
Quarter: 2016Q1

REPORT INFORMATION
  Report Type: Report from Study
  Country: US (occurrence: US)
  Receive Date: 20160225
  Receipt Date: 20160225
  Transmission Date: 20160526
  Serious: Yes (Hospitalization, Other)
  Sender: FDA-Public Use
  Company Number: US-BRISTOL-MYERS SQUIBB COMPANY-BMS-2016-011967

PATIENT
  Age: 64 Year
  Sex: Female
  Weight: 52.61 kg

DRUGS (4)
  1. EXTERNAL-FLUOROURACIL [Suspect]
     Active Substance: FLUOROURACIL
     Indication: PANCREATIC CARCINOMA METASTATIC
     Dosage: UNK, Q2WK
     Route: 042
     Dates: start: 20160108, end: 20160122
  2. EXTERNAL-OXALIPLATIN [Suspect]
     Active Substance: OXALIPLATIN
     Indication: PANCREATIC CARCINOMA METASTATIC
     Dosage: UNK  Q2WK
     Route: 042
     Dates: start: 20160108, end: 20160122
  3. DASATINIB [Suspect]
     Active Substance: DASATINIB
     Indication: PANCREATIC CARCINOMA METASTATIC
     Dosage: 150 MG, QD
     Route: 048
     Dates: start: 20160108, end: 20160129
  4. EXTERNAL-CALCIUM FOLINATE [Suspect]
     Active Substance: LEUCOVORIN CALCIUM
     Indication: PANCREATIC CARCINOMA METASTATIC
     Dosage: UNK, Q2WK
     Route: 042
     Dates: start: 20160108, end: 20160122

REACTIONS (4)
  - Upper respiratory tract infection [Recovered/Resolved]
  - Acute respiratory failure [Recovered/Resolved]
  - Pneumonia [Recovered/Resolved]
  - Pain [None]

NARRATIVE: CASE EVENT DATE: 20160205
